FAERS Safety Report 21160025 (Version 1)
Quarter: 2022Q3

REPORT INFORMATION
  Report Type: Spontaneous
  Country: US (occurrence: None)
  Receive Date: 20220801
  Receipt Date: 20220801
  Transmission Date: 20221027
  Serious: Yes (Death)
  Sender: FDA-Public Use
  Company Number: None

PATIENT
  Age: 74 Year
  Sex: Male

DRUGS (13)
  1. REPATHA [Suspect]
     Active Substance: EVOLOCUMAB
     Indication: Hypertension
     Dosage: OTHER FREQUENCY : Q2 WKS;?
     Route: 058
     Dates: start: 20210610
  2. REPATHA [Concomitant]
     Active Substance: EVOLOCUMAB
  3. ENTRESTO [Concomitant]
     Active Substance: SACUBITRIL\VALSARTAN
  4. METOPROLOL SUCCINATE [Concomitant]
     Active Substance: METOPROLOL SUCCINATE
  5. PANTOPRAZOLE [Concomitant]
     Active Substance: PANTOPRAZOLE
  6. TERAZOSIN [Concomitant]
     Active Substance: TERAZOSIN HYDROCHLORIDE
  7. CALCITRIOL [Concomitant]
     Active Substance: CALCITRIOL
  8. WARFARIN [Concomitant]
     Active Substance: WARFARIN
  9. FUROSEMIDE [Concomitant]
     Active Substance: FUROSEMIDE
  10. PIOGLITAZONE [Concomitant]
     Active Substance: PIOGLITAZONE
  11. HEMALOG [Concomitant]
  12. VITAMIN C [Concomitant]
     Active Substance: ASCORBIC ACID
  13. VITAMIN D [Concomitant]
     Active Substance: VITAMIN D NOS

REACTIONS (1)
  - Pneumonia [None]

NARRATIVE: CASE EVENT DATE: 20220710
